FAERS Safety Report 9516645 (Version 2)
Quarter: 2013Q4

REPORT INFORMATION
  Report Type: Spontaneous
  Country: TR (occurrence: TR)
  Receive Date: 20130911
  Receipt Date: 20131001
  Transmission Date: 20140711
  Serious: Yes (Death, Hospitalization)
  Sender: FDA-Public Use
  Company Number: TR-GLAXOSMITHKLINE-B0921472A

PATIENT
  Age: 40 Year
  Sex: Female

DRUGS (2)
  1. REVOLADE [Suspect]
     Indication: IMMUNE THROMBOCYTOPENIC PURPURA
     Dosage: 25MG UNKNOWN
     Route: 048
     Dates: start: 20120321
  2. PREDNOL [Concomitant]
     Indication: PLATELET COUNT DECREASED
     Route: 048
     Dates: start: 20130730

REACTIONS (2)
  - Haematoma [Fatal]
  - Platelet count decreased [Unknown]
